FAERS Safety Report 25185488 (Version 1)
Quarter: 2025Q2

REPORT INFORMATION
  Report Type: Spontaneous
  Country: US (occurrence: None)
  Receive Date: 20250409
  Receipt Date: 20250409
  Transmission Date: 20250717
  Serious: No
  Sender: FDA-CTU
  Company Number: None

PATIENT

DRUGS (3)
  1. PREDNISONE [Suspect]
     Active Substance: PREDNISONE
  2. METHOTREXATE [Suspect]
     Active Substance: METHOTREXATE
  3. TYSABRI [Suspect]
     Active Substance: NATALIZUMAB

REACTIONS (1)
  - JC virus infection [None]
